FAERS Safety Report 9780783 (Version 1)
Quarter: 2013Q4

REPORT INFORMATION
  Report Type: Spontaneous
  Country: US (occurrence: US)
  Receive Date: 20131224
  Receipt Date: 20131224
  Transmission Date: 20140711
  Serious: Yes (Other)
  Sender: FDA-Public Use
  Company Number: US-009507513-1312USA010597

PATIENT
  Sex: 0

DRUGS (3)
  1. REBETOL [Suspect]
     Indication: HEPATITIS C
     Dosage: UNK
     Route: 048
  2. VICTRELIS [Suspect]
     Indication: HEPATITIS C
     Dosage: UNK
     Route: 048
  3. PEGINTERFERON ALFA-2A [Suspect]
     Indication: HEPATITIS C
     Dosage: UNK

REACTIONS (2)
  - Haemoglobin decreased [Unknown]
  - Transfusion [Unknown]
